FAERS Safety Report 5058039-1 (Version None)
Quarter: 2006Q3

REPORT INFORMATION
  Report Type: 
  Country: None (occurrence: None)
  Receive Date: 20060721
  Receipt Date: 20060524
  Transmission Date: 20061208
  Serious: No
  Sender: FDA-Public Use
  Company Number: US-GLAXOSMITHKLINE-A0606785A

PATIENT
  Age: 65 Year
  Sex: Male

DRUGS (2)
  1. AVANDIA [Suspect]
     Indication: THYROID CANCER METASTATIC
     Route: 048
  2. UNKNOWN [Concomitant]

REACTIONS (3)
  - CANCER IN REMISSION [None]
  - THERAPEUTIC RESPONSE UNEXPECTED [None]
  - WEIGHT INCREASED [None]
